FAERS Safety Report 19218227 (Version 3)
Quarter: 2023Q1

REPORT INFORMATION
  Report Type: Spontaneous
  Country: US (occurrence: None)
  Receive Date: 20210502
  Receipt Date: 20230202
  Transmission Date: 20230417
  Serious: Yes (Hospitalization, Other)
  Sender: FDA-Public Use
  Company Number: 2021A358044

PATIENT
  Age: 17522 Day
  Sex: Male

DRUGS (44)
  1. FARXIGA [Suspect]
     Active Substance: DAPAGLIFLOZIN PROPANEDIOL
     Indication: Type 2 diabetes mellitus
     Route: 048
     Dates: end: 201610
  2. XIGDUO XR [Suspect]
     Active Substance: DAPAGLIFLOZIN PROPANEDIOL\METFORMIN HYDROCHLORIDE
     Indication: Type 2 diabetes mellitus
     Dosage: 5 MG/1000 MG
     Route: 048
     Dates: start: 201508, end: 201610
  3. CEPHALEXIN [Concomitant]
     Active Substance: CEPHALEXIN
  4. GLYCYRRHIZIC ACID/SULFAMETHOXAZOLE/AMINOCAPROIC ACID/CHLORPHENAMINE [Concomitant]
  5. ACETAMINOPHEN [Concomitant]
     Active Substance: ACETAMINOPHEN
  6. CLINDAMYCIN [Concomitant]
     Active Substance: CLINDAMYCIN
  7. METHYLPREDNISOLONE [Concomitant]
     Active Substance: METHYLPREDNISOLONE
  8. PRAVASTATIN [Concomitant]
     Active Substance: PRAVASTATIN
  9. METOPROLOL [Concomitant]
     Active Substance: METOPROLOL
  10. OXYCODONE [Concomitant]
     Active Substance: OXYCODONE
  11. AMLODIPINE [Concomitant]
     Active Substance: AMLODIPINE BESYLATE
     Indication: Hypertension
     Dosage: 10 MG
     Dates: start: 2013
  12. LISINOPRIL [Concomitant]
     Active Substance: LISINOPRIL
  13. GLIPIZIDE [Concomitant]
     Active Substance: GLIPIZIDE
     Indication: Diabetes mellitus
     Dates: start: 2020
  14. EPINEPHRINE [Concomitant]
     Active Substance: EPINEPHRINE
  15. METRONIDAZOLE [Concomitant]
     Active Substance: METRONIDAZOLE
  16. LINEZOLID [Concomitant]
     Active Substance: LINEZOLID
  17. CEFTRIAXONE [Concomitant]
     Active Substance: CEFTRIAXONE
  18. CLONIDINE [Concomitant]
     Active Substance: CLONIDINE
  19. VANCOMYCIN [Concomitant]
     Active Substance: VANCOMYCIN
  20. ZOSYN [Concomitant]
     Active Substance: PIPERACILLIN SODIUM\TAZOBACTAM SODIUM
  21. HYDROMORPHONE [Concomitant]
     Active Substance: HYDROMORPHONE
  22. ONDANSETRON [Concomitant]
     Active Substance: ONDANSETRON
  23. EPINEPHRINE/ETIDOCAINE [Concomitant]
  24. LIDOCAINE [Concomitant]
     Active Substance: LIDOCAINE
  25. PROPOFOL [Concomitant]
     Active Substance: PROPOFOL
  26. FAMOTIDINE [Concomitant]
     Active Substance: FAMOTIDINE
  27. METOCLOPRAMIDE [Concomitant]
     Active Substance: METOCLOPRAMIDE
  28. MIDAZOLAM [Concomitant]
     Active Substance: MIDAZOLAM
  29. MAGNESIUM SULFATE [Concomitant]
     Active Substance: MAGNESIUM SULFATE
  30. DOXYCYCLINE [Concomitant]
     Active Substance: DOXYCYCLINE
  31. PREDNISONE [Concomitant]
     Active Substance: PREDNISONE
  32. FLUTICASONE [Concomitant]
     Active Substance: FLUTICASONE
  33. SUDAFED [Concomitant]
     Active Substance: PSEUDOEPHEDRINE HYDROCHLORIDE
  34. AVELOX [Concomitant]
     Active Substance: MOXIFLOXACIN HYDROCHLORIDE
  35. BACTRIM [Concomitant]
     Active Substance: SULFAMETHOXAZOLE\TRIMETHOPRIM
     Dates: start: 20161014
  36. XIGDUO XR [Concomitant]
     Active Substance: DAPAGLIFLOZIN PROPANEDIOL\METFORMIN HYDROCHLORIDE
     Dates: start: 20161014
  37. TORADOL [Concomitant]
     Active Substance: KETOROLAC TROMETHAMINE
     Dates: start: 20161017
  38. PERCOCET [Concomitant]
     Active Substance: ACETAMINOPHEN\OXYCODONE HYDROCHLORIDE
     Dates: start: 20161016
  39. SODIUM CHLORIDE [Concomitant]
     Active Substance: SODIUM CHLORIDE
     Dates: start: 20161016
  40. CIALIS [Concomitant]
     Active Substance: TADALAFIL
  41. CHOLECALCIFEROL [Concomitant]
     Active Substance: CHOLECALCIFEROL
  42. CRESTOR [Concomitant]
     Active Substance: ROSUVASTATIN CALCIUM
  43. ATACAND [Concomitant]
     Active Substance: CANDESARTAN CILEXETIL
  44. CANDESARTAN [Concomitant]
     Active Substance: CANDESARTAN
     Indication: Hypertension
     Dosage: 12.5 MG
     Dates: start: 2020

REACTIONS (17)
  - Necrotising fasciitis [Unknown]
  - Fournier^s gangrene [Unknown]
  - Groin abscess [Unknown]
  - Scrotal cellulitis [Unknown]
  - Sepsis [Unknown]
  - Fascial infection [Unknown]
  - Folliculitis [Unknown]
  - Perineal cellulitis [Unknown]
  - Scrotal abscess [Unknown]
  - Perineal abscess [Unknown]
  - Testicular abscess [Unknown]
  - Obesity [Unknown]
  - Hyperglycaemia [Unknown]
  - Hypertension [Unknown]
  - Diabetes mellitus [Unknown]
  - Anal abscess [Unknown]
  - Genital abscess [Unknown]

NARRATIVE: CASE EVENT DATE: 20160222
